FAERS Safety Report 7211567-2 (Version None)
Quarter: 2010Q4

REPORT INFORMATION
  Report Type: 
  Country: None (occurrence: None)
  Receive Date: 20101228
  Receipt Date: 20101217
  Transmission Date: 20110411
  Serious: Yes (Hospitalization)
  Sender: FDA-Public Use
  Company Number: 023945

PATIENT
  Sex: Female
  Weight: 60 kg

DRUGS (3)
  1. KEPPRA [Suspect]
     Indication: EPILEPSY
     Dosage: 1000 MG BID ORAL, 1000 MG QD ORAL, 1500 MG QD, 1500 MG ONCE DAILY ORAL
     Route: 048
     Dates: start: 20100501, end: 20100928
  2. KEPPRA [Suspect]
     Indication: EPILEPSY
     Dosage: 1000 MG BID ORAL, 1000 MG QD ORAL, 1500 MG QD, 1500 MG ONCE DAILY ORAL
     Route: 048
     Dates: start: 20100929
  3. KEPPRA [Suspect]
     Indication: EPILEPSY
     Dosage: 1000 MG BID ORAL, 1000 MG QD ORAL, 1500 MG QD, 1500 MG ONCE DAILY ORAL
     Route: 048
     Dates: start: 20100929

REACTIONS (1)
  - SUDDEN HEARING LOSS [None]
